FAERS Safety Report 20518309 (Version 3)
Quarter: 2022Q2

REPORT INFORMATION
  Report Type: Report from Study
  Country: US (occurrence: US)
  Receive Date: 20220225
  Receipt Date: 20220418
  Transmission Date: 20220721
  Serious: Yes (Other)
  Sender: FDA-Public Use
  Company Number: US-EXELIXIS-CABO-22049338

PATIENT
  Age: 76 Year
  Sex: Male

DRUGS (16)
  1. CABOMETYX [Suspect]
     Active Substance: CABOZANTINIB S-MALATE
     Indication: Prostate cancer
     Dosage: 40 MG, QD
     Dates: start: 20220202
  2. CABOMETYX [Suspect]
     Active Substance: CABOZANTINIB S-MALATE
     Dosage: 20 MG, QD
     Dates: start: 20220331
  3. LUPRON [Concomitant]
     Active Substance: LEUPROLIDE ACETATE
  4. ATORVASTATIN [Concomitant]
     Active Substance: ATORVASTATIN
  5. METOPROLOL [Concomitant]
     Active Substance: METOPROLOL
  6. METFORMIN [Concomitant]
     Active Substance: METFORMIN HYDROCHLORIDE
  7. METHIMAZOLE [Concomitant]
     Active Substance: METHIMAZOLE
  8. LOSARTAN [Concomitant]
     Active Substance: LOSARTAN
  9. ASPIRIN [Concomitant]
     Active Substance: ASPIRIN
  10. PREDNISONE [Concomitant]
     Active Substance: PREDNISONE
  11. GABAPENTIN [Concomitant]
     Active Substance: GABAPENTIN
  12. FLAXSEED [Concomitant]
     Active Substance: FLAX SEED
  13. VITAMINS [Concomitant]
     Active Substance: VITAMINS
  14. CALCIUM [Concomitant]
     Active Substance: CALCIUM
  15. VITAMIN D3 [Concomitant]
     Active Substance: CHOLECALCIFEROL
  16. VITAMIN B12 [Concomitant]
     Active Substance: CYANOCOBALAMIN

REACTIONS (15)
  - Blood disorder [Unknown]
  - Prostatic specific antigen increased [Unknown]
  - Erythema [Not Recovered/Not Resolved]
  - Neuropathy peripheral [Unknown]
  - Peripheral swelling [Recovered/Resolved]
  - Hyperkeratosis [Unknown]
  - Fatigue [Recovering/Resolving]
  - Nausea [Not Recovered/Not Resolved]
  - Taste disorder [Not Recovered/Not Resolved]
  - Dysphonia [Recovering/Resolving]
  - Diarrhoea [Recovered/Resolved]
  - Pain in extremity [Not Recovered/Not Resolved]
  - Decreased appetite [Recovering/Resolving]
  - Weight decreased [Recovering/Resolving]
  - Off label use [Unknown]

NARRATIVE: CASE EVENT DATE: 20220204
